FAERS Safety Report 7722548-4 (Version None)
Quarter: 2011Q3

REPORT INFORMATION
  Report Type: 
  Country: None (occurrence: None)
  Receive Date: 20110831
  Receipt Date: 20110822
  Transmission Date: 20111222
  Serious: Yes (Other)
  Sender: FDA-Public Use
  Company Number: US-ASTRAZENECA-2011SE47195

PATIENT
  Age: 74 Year
  Sex: Female

DRUGS (2)
  1. FEMARA [Concomitant]
  2. NEXIUM [Suspect]
     Dosage: TWICE A DAY
     Route: 048

REACTIONS (5)
  - ABDOMINAL DISCOMFORT [None]
  - BREAST CANCER [None]
  - OESOPHAGEAL DILATATION [None]
  - OESOPHAGEAL DISCOMFORT [None]
  - BURN OESOPHAGEAL [None]
